FAERS Safety Report 6554451-X (Version None)
Quarter: 2010Q1

REPORT INFORMATION
  Report Type: 
  Country: None (occurrence: None)
  Receive Date: 20100125
  Receipt Date: 20100125
  Transmission Date: 20100710
  Serious: Yes (Life-Threatening)
  Sender: FDA-Public Use
  Company Number: None

PATIENT
  Age: 14 Year
  Sex: Female
  Weight: 43 kg

DRUGS (4)
  1. REMICADE [Suspect]
     Indication: INFLAMMATORY BOWEL DISEASE
     Dosage: 350 MG EVERY 2 MONTHS IV
     Route: 042
     Dates: start: 20070510, end: 20091009
  2. AZATHIOPRINE [Concomitant]
  3. PREDNISOLONE [Concomitant]
  4. PROTOFOAM [Concomitant]

REACTIONS (10)
  - B-CELL LYMPHOMA [None]
  - BACK PAIN [None]
  - CONDITION AGGRAVATED [None]
  - CROHN'S DISEASE [None]
  - DECREASED APPETITE [None]
  - FATIGUE [None]
  - HYPERCALCAEMIA [None]
  - LEUKAEMIA [None]
  - MUSCULOSKELETAL PAIN [None]
  - TUMOUR LYSIS SYNDROME [None]
